FAERS Safety Report 5430302-1 (Version None)
Quarter: 2007Q3

REPORT INFORMATION
  Report Type: 
  Country: None (occurrence: None)
  Receive Date: 20070828
  Receipt Date: 20070814
  Transmission Date: 20080115
  Serious: Yes (Hospitalization)
  Sender: FDA-Public Use
  Company Number: SPV1-2007-03585

PATIENT
  Age: 38 Year
  Sex: Female

DRUGS (4)
  1. PENTASA [Suspect]
     Indication: COLITIS ULCERATIVE
     Dosage: 750 MG, 3X/DAY;  TID, ORAL
     Route: 048
     Dates: start: 20070621, end: 20070627
  2. PREDNISOLONE [Concomitant]
  3. NIZATIDINE [Concomitant]
  4. CALCITRIOL [Concomitant]

REACTIONS (7)
  - ABDOMINAL PAIN [None]
  - ARTHRALGIA [None]
  - CHILLS [None]
  - DIARRHOEA [None]
  - HEADACHE [None]
  - NAUSEA [None]
  - PYREXIA [None]
